FAERS Safety Report 7494661-0 (Version None)
Quarter: 2011Q2

REPORT INFORMATION
  Report Type: 
  Country: None (occurrence: None)
  Receive Date: 20110520
  Receipt Date: 20110518
  Transmission Date: 20111010
  Serious: Yes (Life-Threatening, Hospitalization, Other)
  Sender: FDA-Public Use
  Company Number: JP-ABBOTT-11P-087-0710484-00

PATIENT
  Sex: Female
  Weight: 34 kg

DRUGS (10)
  1. ETODOLAC [Concomitant]
     Indication: RHEUMATOID ARTHRITIS
     Route: 048
     Dates: start: 20080929
  2. ROXATIDINE ACETATE HCL [Concomitant]
     Indication: GASTROINTESTINAL MUCOSAL DISORDER
  3. FLUTOPRAZEPAM [Concomitant]
     Indication: INSOMNIA
     Route: 048
     Dates: start: 19990422
  4. ROXATIDINE ACETATE HCL [Concomitant]
     Indication: PROPHYLAXIS
     Route: 048
     Dates: start: 20080929
  5. TRIAZOLAM [Concomitant]
     Indication: INSOMNIA
     Route: 048
     Dates: start: 20100118
  6. HUMIRA [Suspect]
     Indication: RHEUMATOID ARTHRITIS
     Route: 058
     Dates: start: 20100806, end: 20110301
  7. PREDNISOLONE [Suspect]
     Indication: RHEUMATOID ARTHRITIS
     Route: 048
     Dates: start: 19970618, end: 19970821
  8. DICLOFENAC SODIUM [Concomitant]
     Indication: RHEUMATOID ARTHRITIS
     Route: 054
     Dates: start: 19980304
  9. PREDNISOLONE [Suspect]
     Dates: start: 19970821
  10. BUCILLAMINE [Concomitant]
     Indication: PRODUCT USED FOR UNKNOWN INDICATION
     Dosage: 200MG
     Dates: start: 19970821

REACTIONS (10)
  - PNEUMONIA [None]
  - HYPOXIA [None]
  - PYREXIA [None]
  - CARDIOMEGALY [None]
  - ELECTROCARDIOGRAM ST SEGMENT ELEVATION [None]
  - HERPES ZOSTER [None]
  - ACUTE MYOCARDIAL INFARCTION [None]
  - CARDIAC FAILURE CONGESTIVE [None]
  - COUGH [None]
  - TROPONIN T INCREASED [None]
